FAERS Safety Report 6121499-9 (Version None)
Quarter: 2009Q1

REPORT INFORMATION
  Report Type: 
  Country: None (occurrence: None)
  Receive Date: 20090316
  Receipt Date: 20090316
  Transmission Date: 20090719
  Serious: Yes (Other)
  Sender: FDA-Public Use
  Company Number: None

PATIENT
  Age: 43 Year
  Sex: Male
  Weight: 136.0791 kg

DRUGS (1)
  1. AMOXICILLIN [Suspect]
     Indication: TOOTH INFECTION
     Dosage: 1 CAPSULE -500MG- EVERY 8 HRS PO
     Route: 048
     Dates: start: 20090304, end: 20090311

REACTIONS (8)
  - EYE SWELLING [None]
  - HYPERSENSITIVITY [None]
  - JOINT SWELLING [None]
  - LIP SWELLING [None]
  - NO REACTION ON PREVIOUS EXPOSURE TO DRUG [None]
  - OEDEMA PERIPHERAL [None]
  - SWELLING FACE [None]
  - URTICARIA [None]
